FAERS Safety Report 6283222-7 (Version None)
Quarter: 2009Q3

REPORT INFORMATION
  Report Type: 
  Country: None (occurrence: None)
  Receive Date: 20090724
  Receipt Date: 20090721
  Transmission Date: 20100115
  Serious: Yes (Life-Threatening, Hospitalization, Disabling)
  Sender: FDA-Public Use
  Company Number: US-JNJFOC-20090703568

PATIENT
  Sex: Female
  Weight: 143.5 kg

DRUGS (58)
  1. GOLIMUMAB [Suspect]
     Route: 058
  2. GOLIMUMAB [Suspect]
     Route: 058
  3. GOLIMUMAB [Suspect]
     Route: 058
  4. GOLIMUMAB [Suspect]
     Route: 058
  5. GOLIMUMAB [Suspect]
     Route: 058
  6. GOLIMUMAB [Suspect]
     Route: 058
  7. GOLIMUMAB [Suspect]
     Route: 058
  8. GOLIMUMAB [Suspect]
     Route: 058
  9. GOLIMUMAB [Suspect]
     Route: 058
  10. GOLIMUMAB [Suspect]
     Route: 058
  11. GOLIMUMAB [Suspect]
     Route: 058
  12. GOLIMUMAB [Suspect]
     Route: 058
  13. GOLIMUMAB [Suspect]
     Route: 058
  14. GOLIMUMAB [Suspect]
     Route: 058
  15. GOLIMUMAB [Suspect]
     Route: 058
  16. GOLIMUMAB [Suspect]
     Route: 058
  17. GOLIMUMAB [Suspect]
     Route: 058
  18. GOLIMUMAB [Suspect]
     Route: 058
  19. GOLIMUMAB [Suspect]
     Route: 058
  20. GOLIMUMAB [Suspect]
     Route: 058
  21. GOLIMUMAB [Suspect]
     Route: 058
  22. GOLIMUMAB [Suspect]
     Indication: RHEUMATOID ARTHRITIS
     Route: 058
  23. PLACEBO [Suspect]
     Route: 058
  24. PLACEBO [Suspect]
     Route: 058
  25. PLACEBO [Suspect]
     Route: 058
  26. PLACEBO [Suspect]
     Route: 058
  27. PLACEBO [Suspect]
     Indication: RHEUMATOID ARTHRITIS
     Route: 058
  28. VITAMIN D [Concomitant]
     Indication: HYPOVITAMINOSIS
     Route: 048
  29. FOLIC ACID [Concomitant]
     Indication: PROPHYLAXIS
     Route: 048
  30. LASIX [Concomitant]
     Indication: HYPERTENSION
     Route: 048
  31. LASIX [Concomitant]
     Indication: OEDEMA
     Route: 048
  32. FLEXERIL [Concomitant]
     Indication: MUSCLE SPASMS
     Route: 048
  33. REGLAN [Concomitant]
     Indication: IMPAIRED GASTRIC EMPTYING
     Route: 048
  34. TYLENOL [Concomitant]
     Indication: RHEUMATOID ARTHRITIS
     Route: 048
  35. CALCIUM [Concomitant]
     Indication: MINERAL SUPPLEMENTATION
     Route: 048
  36. CELEBREX [Concomitant]
     Indication: RHEUMATOID ARTHRITIS
     Route: 048
  37. GLUCOPHAGE [Concomitant]
     Route: 048
  38. ACCUPRIL [Concomitant]
     Route: 048
  39. ACCUPRIL [Concomitant]
     Route: 048
  40. ACCUPRIL [Concomitant]
     Indication: HYPERTENSION
     Route: 048
  41. DARVOCET-N 100 [Concomitant]
     Indication: CARPAL TUNNEL SYNDROME
     Route: 048
  42. PRILOSEC [Concomitant]
     Indication: GASTRITIS
     Route: 048
  43. MULTI-VITAMINS [Concomitant]
     Indication: VITAMIN SUPPLEMENTATION
     Route: 048
  44. HUMALOG [Concomitant]
     Indication: DIABETES MELLITUS
     Dosage: 35 UNITS
     Route: 058
  45. LANTUS [Concomitant]
     Indication: DIABETES MELLITUS
     Dosage: 50 UNITS
     Route: 058
  46. VITAMIN B-12 [Concomitant]
     Indication: VITAMIN SUPPLEMENTATION
     Route: 030
  47. OXYBUTYNIN CHLORIDE [Concomitant]
     Indication: URINARY INCONTINENCE
     Route: 048
  48. METHOTREXATE [Concomitant]
     Indication: RHEUMATOID ARTHRITIS
     Route: 048
  49. ASPIRIN [Concomitant]
     Indication: CARDIOVASCULAR EVENT PROPHYLAXIS
     Route: 048
  50. CYMBALTA [Concomitant]
     Indication: DEPRESSION
     Route: 048
  51. LIDOCAINE [Concomitant]
     Indication: NON-CARDIAC CHEST PAIN
     Route: 062
  52. GABAPENTIN [Concomitant]
     Indication: NEUROPATHY PERIPHERAL
     Route: 048
  53. PREDNISONE TAB [Concomitant]
     Route: 048
  54. PREDNISONE TAB [Concomitant]
     Route: 048
  55. PREDNISONE TAB [Concomitant]
     Route: 048
  56. PREDNISONE TAB [Concomitant]
     Indication: PLEURISY
     Route: 048
  57. LEVOTHYROXINE SODIUM [Concomitant]
     Indication: HYPOTHYROIDISM
     Route: 048
  58. NYSTOP [Concomitant]
     Indication: ANTIFUNGAL PROPHYLAXIS
     Route: 061

REACTIONS (2)
  - CARDIOMYOPATHY [None]
  - GENERALISED OEDEMA [None]
